FAERS Safety Report 5073503-7 (Version None)
Quarter: 2006Q3

REPORT INFORMATION
  Report Type: 
  Country: None (occurrence: None)
  Receive Date: 20060717
  Receipt Date: 20051121
  Transmission Date: 20061208
  Serious: No
  Sender: FDA-Public Use
  Company Number: 2005002265

PATIENT
  Sex: Male

DRUGS (6)
  1. TARCEVA [Suspect]
     Indication: PANCREATIC CARCINOMA METASTATIC
     Dosage: 150 MG (QD), ORAL
     Route: 048
  2. GEMZAR [Concomitant]
  3. ZOCOR [Concomitant]
  4. SYNTHROID [Concomitant]
  5. CLARINEX [Concomitant]
  6. NEXIUM [Concomitant]

REACTIONS (6)
  - DRY SKIN [None]
  - GASTRITIS [None]
  - PHOTOSENSITIVITY REACTION [None]
  - RASH [None]
  - SKIN FISSURES [None]
  - SKIN HAEMORRHAGE [None]
